FAERS Safety Report 5371814-9 (Version None)
Quarter: 2007Q2

REPORT INFORMATION
  Report Type: 
  Country: None (occurrence: None)
  Receive Date: 20070619
  Receipt Date: 20070507
  Transmission Date: 20071010
  Serious: No
  Sender: FDA-Public Use
  Company Number: 2007US000633

PATIENT
  Age: 38 Year
  Sex: Female

DRUGS (2)
  1. VESICARE [Suspect]
     Indication: POLLAKIURIA
     Dosage: 5 MG, ORAL 10 MG, ORAL
     Route: 048
     Dates: start: 20070208, end: 20070305
  2. VESICARE [Suspect]
     Indication: POLLAKIURIA
     Dosage: 5 MG, ORAL 10 MG, ORAL
     Route: 048
     Dates: start: 20070305

REACTIONS (1)
  - DRUG INEFFECTIVE [None]
